FAERS Safety Report 21135644 (Version 1)
Quarter: 2022Q3

REPORT INFORMATION
  Report Type: Spontaneous
  Country: US (occurrence: US)
  Receive Date: 20220727
  Receipt Date: 20220727
  Transmission Date: 20221027
  Serious: No
  Sender: FDA-Public Use
  Company Number: US-Accord-262094

PATIENT
  Sex: Female
  Weight: 67.13 kg

DRUGS (5)
  1. LETROZOLE [Suspect]
     Active Substance: LETROZOLE
     Indication: Breast cancer
     Dosage: DAILY
     Route: 048
     Dates: start: 202112
  2. ABEMACICLIB [Concomitant]
     Active Substance: ABEMACICLIB
  3. CALCIUM CITRATE [Concomitant]
     Active Substance: CALCIUM CITRATE
  4. VITAMIN D3 [Concomitant]
     Active Substance: CHOLECALCIFEROL
  5. VITAMIN B12 [Concomitant]
     Active Substance: CYANOCOBALAMIN

REACTIONS (3)
  - Product container issue [Unknown]
  - Product taste abnormal [Unknown]
  - Poor quality product administered [Unknown]
